FAERS Safety Report 4535926-1 (Version None)
Quarter: 2004Q4

REPORT INFORMATION
  Report Type: 
  Country: None (occurrence: None)
  Receive Date: 20041223
  Receipt Date: 20041118
  Transmission Date: 20050328
  Serious: Yes (Hospitalization)
  Sender: FDA-Public Use
  Company Number: PHBS2004JP15630

PATIENT
  Age: 52 Year
  Sex: Male

DRUGS (1)
  1. LAMISIL [Suspect]
     Indication: NAIL TINEA
     Dosage: 125 MG/D
     Route: 048
     Dates: start: 20040801, end: 20041001

REACTIONS (7)
  - ALANINE AMINOTRANSFERASE INCREASED [None]
  - CHEST X-RAY ABNORMAL [None]
  - COUGH [None]
  - EOSINOPHIL COUNT INCREASED [None]
  - INTERSTITIAL LUNG DISEASE [None]
  - PYREXIA [None]
  - WHITE BLOOD CELL COUNT INCREASED [None]
